FAERS Safety Report 25533145 (Version 1)
Quarter: 2025Q3

REPORT INFORMATION
  Report Type: Spontaneous
  Country: US (occurrence: US)
  Receive Date: 20250709
  Receipt Date: 20250709
  Transmission Date: 20251020
  Serious: No
  Sender: STRIDES
  Company Number: US-STRIDES ARCOLAB LIMITED-2024SP006473

PATIENT
  Sex: Male

DRUGS (4)
  1. TORSEMIDE [Suspect]
     Active Substance: TORSEMIDE
     Indication: Pulmonary oedema
     Route: 065
  2. TORSEMIDE [Suspect]
     Active Substance: TORSEMIDE
     Route: 065
  3. TORSEMIDE [Suspect]
     Active Substance: TORSEMIDE
     Route: 065
  4. VYNDAMAX [Concomitant]
     Active Substance: TAFAMIDIS
     Indication: Product used for unknown indication
     Route: 048

REACTIONS (2)
  - Rebound effect [Unknown]
  - Hypotension [Unknown]
